FAERS Safety Report 9006727 (Version 3)
Quarter: 2013Q2

REPORT INFORMATION
  Report Type: Spontaneous
  Country: US (occurrence: US)
  Receive Date: 20130110
  Receipt Date: 20130412
  Transmission Date: 20140414
  Serious: Yes (Death)
  Sender: FDA-Public Use
  Company Number: US-GILEAD-2013-0067557

PATIENT
  Age: 81 Year
  Sex: Female

DRUGS (13)
  1. LETAIRIS [Suspect]
     Indication: PULMONARY ARTERIAL HYPERTENSION
     Dosage: 5 MG, QD
     Route: 048
     Dates: start: 20121113, end: 20121211
  2. HYDROCHLOROTHIAZIDE W/LISINOPRIL [Concomitant]
     Dosage: 20-25 MG
  3. OXYGEN [Concomitant]
     Dosage: 2 L, UNK
  4. LATANOPROST [Concomitant]
  5. PROCARDIA                          /00340701/ [Concomitant]
     Dosage: 60 MG, QD
  6. ATENOLOL [Concomitant]
     Dosage: 50 MG, QD
  7. ALPHAGAN P [Concomitant]
     Dosage: 0.15 %, UNK
  8. HUMALOG [Concomitant]
     Dosage: 75/25, BID
  9. SYNTHROID [Concomitant]
     Dosage: 250MCG,
  10. VITAMIN D /00107901/ [Concomitant]
     Dosage: 400 UNIT CAPSULE, QD
  11. XALATAN [Concomitant]
     Dosage: 0.005 %, UNK
  12. CENTRUM SILVER                     /02363801/ [Concomitant]
  13. BUMEX [Concomitant]
     Dosage: UNK
     Dates: start: 20121211

REACTIONS (5)
  - Pulmonary hypertension [Fatal]
  - Hypoxia [Unknown]
  - Obesity [Unknown]
  - Dyspnoea [Unknown]
  - Oedema peripheral [Unknown]
